FAERS Safety Report 5732032-5 (Version None)
Quarter: 2008Q2

REPORT INFORMATION
  Report Type: 
  Country: None (occurrence: None)
  Receive Date: 20080506
  Receipt Date: 20080407
  Transmission Date: 20081010
  Serious: No
  Sender: FDA-Public Use
  Company Number: 001#2#2008-00220

PATIENT
  Age: 65 Year
  Sex: Male

DRUGS (1)
  1. NEUPRO [Suspect]
     Dosage: 4 MG/24H (24 MG/24H 1 IN 1 DAY(S))
     Route: 062

REACTIONS (8)
  - APPLICATION SITE VESICLES [None]
  - DRY SKIN [None]
  - ERYTHEMA [None]
  - IMPAIRED HEALING [None]
  - PHARMACEUTICAL PRODUCT COMPLAINT [None]
  - PRURITUS [None]
  - SCAR [None]
  - SKIN EXFOLIATION [None]
